FAERS Safety Report 8402293-2 (Version None)
Quarter: 2012Q2

REPORT INFORMATION
  Report Type: 
  Country: None (occurrence: None)
  Receive Date: 20120601
  Receipt Date: 20120522
  Transmission Date: 20120825
  Serious: Yes (Other)
  Sender: FDA-Public Use
  Company Number: FI-BRISTOL-MYERS SQUIBB COMPANY-16628323

PATIENT

DRUGS (1)
  1. ORENCIA [Suspect]

REACTIONS (1)
  - PULMONARY EMBOLISM [None]
